FAERS Safety Report 6751546-2 (Version None)
Quarter: 2010Q2

REPORT INFORMATION
  Report Type: 
  Country: None (occurrence: None)
  Receive Date: 20100602
  Receipt Date: 20100519
  Transmission Date: 20101027
  Serious: Yes (Hospitalization)
  Sender: FDA-Public Use
  Company Number: FR-JNJFOC-20100600052

PATIENT
  Sex: Female

DRUGS (7)
  1. TOPALGIC [Suspect]
     Indication: OSTEOARTHRITIS
     Route: 048
  2. LODINE [Suspect]
     Indication: OSTEOARTHRITIS
     Route: 048
  3. CHONDROSULF [Suspect]
     Indication: OSTEOARTHRITIS
     Route: 048
  4. ESOMEPRAZOLE MAGNESIUM [Suspect]
     Indication: PROPHYLAXIS AGAINST GASTROINTESTINAL ULCER
     Route: 048
  5. LEVOTHYROXINE SODIUM [Concomitant]
  6. DOLIPRANE [Concomitant]
  7. AMOXICILLIN [Concomitant]

REACTIONS (1)
  - AGRANULOCYTOSIS [None]
